FAERS Safety Report 8993372 (Version 6)
Quarter: 2013Q2

REPORT INFORMATION
  Report Type: Report from Study
  Country: JP (occurrence: JP)
  Receive Date: 20130102
  Receipt Date: 20130418
  Transmission Date: 20140414
  Serious: Yes (Hospitalization)
  Sender: FDA-Public Use
  Company Number: JP-BAXTER-2012BAX028832

PATIENT
  Age: 63 Year
  Sex: Male
  Weight: 88.75 kg

DRUGS (16)
  1. SENDOXAN 1000 MG PULVER TILL INJEKTIONSV?TSKA, L?SNING [Suspect]
     Indication: B-CELL LYMPHOMA
     Route: 042
     Dates: start: 20120926
  2. DOXORUBICIN [Suspect]
     Indication: B-CELL LYMPHOMA
     Route: 042
     Dates: start: 20120926
  3. PREDNISONE [Suspect]
     Indication: B-CELL LYMPHOMA
     Route: 065
     Dates: start: 20120925
  4. VINCRISTINE [Suspect]
     Indication: B-CELL LYMPHOMA
     Route: 042
  5. VINCRISTINE [Suspect]
     Route: 042
     Dates: start: 20120926
  6. ZOLPIDEM TARTRATE [Concomitant]
     Indication: INSOMNIA
     Route: 065
     Dates: start: 20120926, end: 20130222
  7. SODIUM PICOSULPHATE [Concomitant]
     Indication: CONSTIPATION
     Route: 065
     Dates: start: 20121010, end: 20121231
  8. ALLOPURINOL [Concomitant]
     Indication: HYPERURICAEMIA
     Route: 065
     Dates: start: 20121130
  9. ARTIST [Concomitant]
     Indication: HYPERTENSION
     Route: 065
  10. XARELTO [Concomitant]
     Indication: ATRIAL FIBRILLATION
     Route: 065
  11. ULCERLMIN [Concomitant]
     Indication: PRODUCT USED FOR UNKNOWN INDICATION
     Route: 065
     Dates: start: 20120924, end: 20130204
  12. MAGNESIUM OXIDE [Concomitant]
     Indication: CONSTIPATION
     Route: 065
     Dates: start: 20120924, end: 20121231
  13. PURSENNID [Concomitant]
     Indication: CONSTIPATION
     Route: 065
     Dates: start: 20121003, end: 20121231
  14. HACHIAZULE [Concomitant]
     Indication: PRODUCT USED FOR UNKNOWN INDICATION
     Route: 065
     Dates: start: 20121015
  15. CALONAL [Concomitant]
     Indication: PREMEDICATION
     Route: 065
     Dates: start: 20120925
  16. POLARAMINE [Concomitant]
     Indication: PREMEDICATION
     Route: 065
     Dates: start: 20120925

REACTIONS (2)
  - Febrile neutropenia [Recovered/Resolved]
  - Pneumocystis jirovecii pneumonia [Recovered/Resolved]
